FAERS Safety Report 7503599-1 (Version None)
Quarter: 2011Q2

REPORT INFORMATION
  Report Type: 
  Country: None (occurrence: None)
  Receive Date: 20110525
  Receipt Date: 20110518
  Transmission Date: 20111010
  Serious: Yes (Death)
  Sender: FDA-Public Use
  Company Number: US-GENZYME-FLUD-1001177

PATIENT

DRUGS (11)
  1. THYMOGLOBULIN [Suspect]
     Indication: MYELODYSPLASTIC SYNDROME
  2. BUSULFAN [Suspect]
     Indication: STEM CELL TRANSPLANT
  3. FLUDARA [Suspect]
     Indication: STEM CELL TRANSPLANT
  4. ACYCLOVIR [Concomitant]
     Indication: ANTIVIRAL PROPHYLAXIS
     Dosage: UNK
     Route: 065
  5. THYMOGLOBULIN [Suspect]
     Indication: STEM CELL TRANSPLANT
     Dosage: 1 MG/KG, QDX4
     Route: 065
  6. BUSULFAN [Suspect]
     Indication: MYELODYSPLASTIC SYNDROME
     Dosage: UNK, SINGLE DAILY DOSES X2 WITH TARGETED ABSOLUTE NEUTROPHIL COUNT AT 4000 MCMOL X MIN PER DAY
     Route: 065
  7. FLUCONAZOLE [Concomitant]
     Indication: ANTIFUNGAL PROPHYLAXIS
     Dosage: UNK
     Route: 065
  8. CYCLOSPORINE [Concomitant]
     Indication: PROPHYLAXIS AGAINST GRAFT VERSUS HOST DISEASE
     Dosage: START ON DAY -1
     Route: 065
  9. MYCOPHENOLATE MOFETIL [Concomitant]
     Indication: PROPHYLAXIS AGAINST GRAFT VERSUS HOST DISEASE
     Dosage: FOR FIRST 50 DAYS POST TRANSPLANT
     Route: 065
  10. ACYCLOVIR [Concomitant]
  11. FLUDARA [Suspect]
     Indication: MYELODYSPLASTIC SYNDROME
     Dosage: 30 MG/M2, QDX6
     Route: 065

REACTIONS (1)
  - MULTI-ORGAN FAILURE [None]
